FAERS Safety Report 25376878 (Version 3)
Quarter: 2025Q3

REPORT INFORMATION
  Report Type: Report from Study
  Country: US (occurrence: US)
  Receive Date: 20250530
  Receipt Date: 20250916
  Transmission Date: 20251021
  Serious: Yes (Other)
  Sender: UCB
  Company Number: US-UCBSA-2025028591

PATIENT
  Sex: Female

DRUGS (3)
  1. BIMEKIZUMAB [Suspect]
     Active Substance: BIMEKIZUMAB
     Indication: Psoriasis
     Dosage: 320 MG BY SUBCUTANEOUS INJECTION AT WEEKS 0, 4, 8, 12, AND 16
     Route: 058
     Dates: start: 20250508
  2. BIMEKIZUMAB [Suspect]
     Active Substance: BIMEKIZUMAB
     Indication: Hidradenitis
  3. BIMEKIZUMAB [Suspect]
     Active Substance: BIMEKIZUMAB
     Indication: Psoriatic arthropathy

REACTIONS (6)
  - Psoriatic arthropathy [Recovering/Resolving]
  - Nausea [Recovered/Resolved]
  - Urticaria [Not Recovered/Not Resolved]
  - Psoriasis [Recovering/Resolving]
  - Hidradenitis [Recovering/Resolving]
  - Condition aggravated [Recovering/Resolving]

NARRATIVE: CASE EVENT DATE: 20250101
